FAERS Safety Report 5888644-1 (Version None)
Quarter: 2008Q3

REPORT INFORMATION
  Report Type: 
  Country: None (occurrence: None)
  Receive Date: 20080918
  Receipt Date: 20080910
  Transmission Date: 20090109
  Serious: Yes (Other)
  Sender: FDA-Public Use
  Company Number: JP-MERCK-0809USA01838B1

PATIENT
  Sex: Male
  Weight: 1 kg

DRUGS (5)
  1. ALDOMET [Suspect]
     Indication: HYPERTENSION
     Route: 064
  2. ALDOMET [Suspect]
     Route: 064
  3. HORMONES (UNSPECIFIED) [Concomitant]
     Route: 064
  4. HORMONES (UNSPECIFIED) [Concomitant]
     Route: 064
  5. [THERAPY UNSPECIFIED] [Concomitant]
     Indication: HYPERTENSION
     Route: 064

REACTIONS (3)
  - FOETAL DISTRESS SYNDROME [None]
  - PREMATURE BABY [None]
  - SMALL FOR DATES BABY [None]
